FAERS Safety Report 9559296 (Version 1)
Quarter: 2013Q3

REPORT INFORMATION
  Report Type: Spontaneous
  Country: US (occurrence: None)
  Receive Date: 20130925
  Receipt Date: 20130925
  Transmission Date: 20140515
  Serious: Yes (Death)
  Sender: FDA-Public Use
  Company Number: UTC-037896

PATIENT
  Age: 60 Year
  Sex: Female
  Weight: 46.8 kg

DRUGS (4)
  1. REMODULIN (1 MILLIGRAM/MILLILITERS, INJECTION FOR INFUSION) (TREPROSTINIL SODIUM) [Suspect]
     Indication: COR PULMONALE CHRONIC
     Dosage: 37.44 UG/KG (0.026 UG/KG, 1 IN1 MIN),  INTRAVENOUS DRIP
     Route: 041
     Dates: start: 20130322, end: 2013
  2. ADCIRCA (TADALAFIL) [Concomitant]
  3. LETAIRIS (AMBRISENTAN) (UNKNOWN) [Concomitant]
  4. FLOLAN (EPOPROSTENOL) (UNKNOWN) [Concomitant]

REACTIONS (1)
  - Death [None]
